FAERS Safety Report 5682626-0 (Version None)
Quarter: 2008Q1

REPORT INFORMATION
  Report Type: 
  Country: None (occurrence: None)
  Receive Date: 20080327
  Receipt Date: 20080111
  Transmission Date: 20080703
  Serious: Yes (Other)
  Sender: FDA-Public Use
  Company Number: US-BRISTOL-MYERS SQUIBB COMPANY-14038152

PATIENT
  Sex: Female

DRUGS (2)
  1. ORENCIA [Suspect]
     Indication: RHEUMATOID ARTHRITIS
     Dosage: LAST INFUSION ON 10-JAN-2008
     Route: 042
     Dates: start: 20070701
  2. ENBREL [Concomitant]

REACTIONS (2)
  - ASTHMA [None]
  - RESPIRATORY TRACT INFECTION [None]
